FAERS Safety Report 25707730 (Version 1)
Quarter: 2025Q3

REPORT INFORMATION
  Report Type: Spontaneous
  Country: JP (occurrence: JP)
  Receive Date: 20250820
  Receipt Date: 20250820
  Transmission Date: 20251021
  Serious: No
  Sender: BridgeBio Pharma
  Company Number: JP-BRIDGEBIO-25JP001322

PATIENT

DRUGS (1)
  1. ACORAMIDIS [Suspect]
     Active Substance: ACORAMIDIS
     Indication: Cardiac amyloidosis
     Route: 048
     Dates: start: 20250718, end: 20250722

REACTIONS (1)
  - Oropharyngeal discomfort [Unknown]
